FAERS Safety Report 23473863 (Version 1)
Quarter: 2024Q1

REPORT INFORMATION
  Report Type: Spontaneous
  Country: SK (occurrence: SK)
  Receive Date: 20240203
  Receipt Date: 20240203
  Transmission Date: 20240410
  Serious: Yes (Other)
  Sender: FDA-Public Use
  Company Number: SK-JNJFOC-20240172946

PATIENT
  Age: 66 Year
  Sex: Male

DRUGS (10)
  1. TREMFYA [Suspect]
     Active Substance: GUSELKUMAB
     Indication: Psoriasis
     Dosage: 100 MG IN WEEK 0 AND 4, THEN 100 MG EVERY 8 WEEKS
     Route: 058
     Dates: start: 20190815
  2. TREMFYA [Suspect]
     Active Substance: GUSELKUMAB
  3. TREMFYA [Suspect]
     Active Substance: GUSELKUMAB
  4. BISOPROLOL FUMARATE\PERINDOPRIL ARGININE [Concomitant]
     Active Substance: BISOPROLOL FUMARATE\PERINDOPRIL ARGININE
     Dosage: 5MG/5MG
  5. AMICLOTON [Concomitant]
     Dosage: 2.5/25MG, HALF TABLET
     Dates: start: 19950101
  6. ALLOPURINOL [Concomitant]
     Active Substance: ALLOPURINOL
     Dates: start: 20000101
  7. ROSUCARD COMBI [Concomitant]
     Dates: start: 20170601
  8. ASPIRIN [Concomitant]
     Active Substance: ASPIRIN
     Dates: start: 19950101
  9. METFORMIN [Concomitant]
     Active Substance: METFORMIN HYDROCHLORIDE
     Dates: start: 20000101
  10. TRULICITY [Concomitant]
     Active Substance: DULAGLUTIDE
     Dates: start: 20180301

REACTIONS (1)
  - Pulmonary mass [Unknown]
